FAERS Safety Report 13371892 (Version 2)
Quarter: 2017Q1

REPORT INFORMATION
  Report Type: Spontaneous
  Country: US (occurrence: US)
  Receive Date: 20170326
  Receipt Date: 20170331
  Transmission Date: 20170429
  Serious: No
  Sender: FDA-Public Use
  Company Number: US-ALLERGAN-2016-000499

PATIENT
  Age: 88 Year
  Sex: Female

DRUGS (2)
  1. ESTRACE [Suspect]
     Active Substance: ESTRADIOL
     Indication: INCONTINENCE
     Dosage: 1.5 G PER ADMINISTRATION
     Route: 065
  2. PREMARIN [Suspect]
     Active Substance: ESTROGENS, CONJUGATED
     Indication: PRODUCT USED FOR UNKNOWN INDICATION
     Dosage: UNK UNK, UNKNOWN
     Route: 065

REACTIONS (4)
  - Inappropriate schedule of drug administration [Unknown]
  - Drug ineffective for unapproved indication [Unknown]
  - Prescribed underdose [Unknown]
  - Product use issue [Unknown]
